FAERS Safety Report 16714631 (Version 2)
Quarter: 2019Q3

REPORT INFORMATION
  Report Type: Spontaneous
  Country: DE (occurrence: DE)
  Receive Date: 20190819
  Receipt Date: 20190826
  Transmission Date: 20191004
  Serious: Yes (Other)
  Sender: FDA-Public Use
  Company Number: DE-BAYER-2019-152229

PATIENT
  Age: 18 Year
  Sex: Female

DRUGS (1)
  1. JAYDESS [Suspect]
     Active Substance: LEVONORGESTREL
     Dosage: 14 MCG/24HR, CONT
     Route: 015
     Dates: start: 20190129, end: 20190716

REACTIONS (6)
  - Migraine with aura [None]
  - Syncope [None]
  - Depression suicidal [None]
  - Menorrhagia [None]
  - Intentional self-injury [None]
  - Dysmenorrhoea [None]

NARRATIVE: CASE EVENT DATE: 20190129
